FAERS Safety Report 5368018-2 (Version None)
Quarter: 2007Q2

REPORT INFORMATION
  Report Type: 
  Country: None (occurrence: None)
  Receive Date: 20070622
  Receipt Date: 20070611
  Transmission Date: 20071010
  Serious: Yes (Other)
  Sender: FDA-Public Use
  Company Number: US-PFIZER INC-2007048467

PATIENT
  Sex: Male
  Weight: 79.5 kg

DRUGS (5)
  1. CHANTIX [Suspect]
     Indication: EX-SMOKER
  2. PLAVIX [Concomitant]
  3. CRESTOR [Concomitant]
  4. BENICAR [Concomitant]
  5. METOPROLOL SUCCINATE [Concomitant]

REACTIONS (4)
  - BLISTER [None]
  - HYPERSENSITIVITY [None]
  - OEDEMA PERIPHERAL [None]
  - RASH [None]
